FAERS Safety Report 11078999 (Version 1)
Quarter: 2015Q2

REPORT INFORMATION
  Report Type: Spontaneous
  Country: DE (occurrence: DE)
  Receive Date: 20150430
  Receipt Date: 20150430
  Transmission Date: 20150821
  Serious: Yes (Hospitalization)
  Sender: FDA-Public Use
  Company Number: DE-ASTRAZENECA-2015SE38338

PATIENT
  Age: 93 Year
  Sex: Female

DRUGS (16)
  1. ASPIRIN. [Interacting]
     Active Substance: ASPIRIN
     Route: 065
  2. TOREM [Interacting]
     Active Substance: TORSEMIDE
     Route: 065
  3. SEROQUEL [Interacting]
     Active Substance: QUETIAPINE FUMARATE
     Route: 048
     Dates: start: 20081110, end: 20081110
  4. ATACAND [Suspect]
     Active Substance: CANDESARTAN CILEXETIL
     Route: 048
  5. PLAVIX [Concomitant]
     Active Substance: CLOPIDOGREL BISULFATE
  6. MAGNESIOCARD [Concomitant]
     Active Substance: MAGNESIUM ASPARTATE HYDROCHLORIDE
  7. LEVEMIR [Concomitant]
     Active Substance: INSULIN DETEMIR
  8. TRAMAL [Interacting]
     Active Substance: TRAMADOL
     Route: 065
  9. LACTULOSE. [Concomitant]
     Active Substance: LACTULOSE
  10. CARBIMAZOL [Concomitant]
  11. KALINOR [Concomitant]
     Active Substance: POTASSIUM CITRATE
  12. AMLODIPINE [Interacting]
     Active Substance: AMLODIPINE BESYLATE
     Route: 065
  13. IS 5 MONO [Interacting]
     Active Substance: ISOSORBIDE MONONITRATE
     Route: 048
  14. NOVORAPID [Concomitant]
     Active Substance: INSULIN ASPART
  15. BISOPROLOL [Interacting]
     Active Substance: BISOPROLOL
     Route: 065
  16. RISPERDAL [Concomitant]
     Active Substance: RISPERIDONE
     Dates: start: 20081104, end: 20081109

REACTIONS (3)
  - Drug interaction [Unknown]
  - Hypotension [Recovered/Resolved]
  - Dizziness [Recovered/Resolved]

NARRATIVE: CASE EVENT DATE: 20081111
